FAERS Safety Report 5446229-5 (Version None)
Quarter: 2007Q3

REPORT INFORMATION
  Report Type: 
  Country: None (occurrence: None)
  Receive Date: 20070907
  Receipt Date: 20070830
  Transmission Date: 20080115
  Serious: Yes (Other)
  Sender: FDA-Public Use
  Company Number: ZA-ABBOTT-07P-143-0415619-00

PATIENT
  Sex: Female

DRUGS (3)
  1. TEVETEN PLUS [Suspect]
     Indication: HYPERTENSION
     Route: 048
     Dates: start: 20070524, end: 20070526
  2. METFORMIN [Concomitant]
     Indication: DIABETES MELLITUS
     Route: 048
     Dates: start: 20050101
  3. MELOXICAM [Concomitant]
     Indication: RHEUMATOID ARTHRITIS
     Route: 048
     Dates: start: 20050101

REACTIONS (2)
  - HALLUCINATION, VISUAL [None]
  - PANIC REACTION [None]
